FAERS Safety Report 16776024 (Version 2)
Quarter: 2019Q3

REPORT INFORMATION
  Report Type: Spontaneous
  Country: BR (occurrence: BR)
  Receive Date: 20190905
  Receipt Date: 20190919
  Transmission Date: 20191005
  Serious: Yes (Other)
  Sender: FDA-Public Use
  Company Number: PHHY2019BR204358

PATIENT
  Age: 25 Year
  Sex: Female
  Weight: 45 kg

DRUGS (4)
  1. CICLO [Concomitant]
     Indication: CONTRACEPTION
     Dosage: 1 DF, QD
     Route: 048
  2. AMOXICILLIN + CLAVULANATE POTASSIUM [Suspect]
     Active Substance: AMOXICILLIN\CLAVULANATE POTASSIUM
     Indication: INFLAMMATION
     Dosage: UNK UNK, TID
     Route: 048
     Dates: start: 20190721, end: 20190724
  3. AMOXICILLIN + CLAVULANATE POTASSIUM [Suspect]
     Active Substance: AMOXICILLIN\CLAVULANATE POTASSIUM
     Indication: OROPHARYNGEAL PAIN
  4. STREPSILS [Concomitant]
     Indication: OROPHARYNGEAL PAIN
     Dosage: UNK UNK, TID
     Route: 048
     Dates: start: 20190721, end: 20190722

REACTIONS (6)
  - Abdominal pain [Not Recovered/Not Resolved]
  - Urticaria [Recovered/Resolved]
  - Irritable bowel syndrome [Unknown]
  - Haemorrhoids [Recovered/Resolved]
  - Drug ineffective [Recovering/Resolving]
  - Diarrhoea haemorrhagic [Not Recovered/Not Resolved]

NARRATIVE: CASE EVENT DATE: 201907
